FAERS Safety Report 6245452-X (Version None)
Quarter: 2009Q2

REPORT INFORMATION
  Report Type: 
  Country: None (occurrence: None)
  Receive Date: 20090625
  Receipt Date: 20090612
  Transmission Date: 20091009
  Serious: Yes (Hospitalization)
  Sender: FDA-Public Use
  Company Number: PHHY2008MX30894

PATIENT
  Age: 62 Year
  Sex: Female

DRUGS (1)
  1. DIOVAN [Suspect]
     Indication: HYPERTENSION
     Dosage: 80 MG, QD
     Route: 048
     Dates: start: 20060601, end: 20081001

REACTIONS (10)
  - BREAST CANCER [None]
  - HYPOXIA [None]
  - IMMUNODEFICIENCY [None]
  - INFECTION [None]
  - LIMB INJURY [None]
  - LIVER INJURY [None]
  - LUNG INJURY [None]
  - MASTECTOMY [None]
  - RENAL INJURY [None]
  - SEPTIC SHOCK [None]
